FAERS Safety Report 6446441-2 (Version None)
Quarter: 2009Q4

REPORT INFORMATION
  Report Type: 
  Country: None (occurrence: None)
  Receive Date: 20091119
  Receipt Date: 20091110
  Transmission Date: 20100525
  Serious: Yes (Hospitalization)
  Sender: FDA-Public Use
  Company Number: PHEH2009US11519

PATIENT
  Sex: Male

DRUGS (2)
  1. EXJADE [Suspect]
     Indication: BLOOD DISORDER
     Dosage: 500 MG, BID
     Route: 048
  2. STEROIDS NOS [Concomitant]

REACTIONS (6)
  - DIABETES MELLITUS [None]
  - HAEMORRHAGE [None]
  - INFECTION [None]
  - LIMB INJURY [None]
  - PNEUMONIA [None]
  - PYREXIA [None]
